FAERS Safety Report 6616428-5 (Version None)
Quarter: 2010Q1

REPORT INFORMATION
  Report Type: 
  Country: None (occurrence: None)
  Receive Date: 20100305
  Receipt Date: 20100222
  Transmission Date: 20100710
  Serious: Yes (Other)
  Sender: FDA-Public Use
  Company Number: PHEH2008US02671

PATIENT
  Sex: Male

DRUGS (29)
  1. ZOMETA [Suspect]
     Indication: PROSTATE CANCER
     Dosage: 4 MG, Q5W
     Dates: start: 20030106, end: 20060523
  2. CHEMOTHERAPEUTICS NOS [Concomitant]
  3. DEXAMETHASONE [Concomitant]
  4. RADIATION THERAPY [Concomitant]
     Indication: ASTHENIA
     Dosage: UNK
     Dates: start: 20020101
  5. RADIATION THERAPY [Concomitant]
     Indication: HYPOAESTHESIA
  6. FLOMAX [Concomitant]
  7. LOTREL [Concomitant]
  8. ZOLADEX [Concomitant]
  9. PAXIL [Concomitant]
  10. DYAZIDE [Concomitant]
  11. EMCYT [Concomitant]
     Dosage: 140 MG CAPSULES TWICE DAILY
  12. CRESTOR [Concomitant]
     Dosage: 10 MG TABLETS DAILY
  13. LORAZEPAM [Concomitant]
     Dosage: 1 MG, 2 TABLETS AS NEEDED
  14. TRIAMTERENE AND HYDROCHLOROTHIAZID ^HARRIS^ [Concomitant]
     Dosage: 3 TIMES DILY
  15. ATIVAN [Concomitant]
     Dosage: 2 MG TABLETS, 1-2 DAILY
  16. TAXOL [Concomitant]
     Dosage: UNK
  17. XANAX [Concomitant]
     Dosage: 0.25 MG, TID
     Route: 048
  18. ACETAMINOPHEN AND HYDROCODONE BITARTRATE [Concomitant]
     Dosage: 7.5 MG, PRN
     Route: 048
     Dates: start: 20090513
  19. GOSERELIN [Concomitant]
     Dosage: UNK
  20. CIMETIDINE [Concomitant]
     Dosage: 300 MG, UNK
     Route: 048
  21. ZOFRAN [Concomitant]
     Dosage: 32 MG, QD
  22. BENADRYL ^ACHE^ [Concomitant]
     Dosage: 25 MG, QD
     Route: 048
  23. PACLITAXEL [Concomitant]
     Dosage: 150 MG, UNK
  24. PHENERGAN ^AVENTIS PHARMA^ [Concomitant]
     Dosage: 25 MG, PRN
     Route: 048
  25. OXYCONTIN [Concomitant]
     Dosage: 40 MG, PRN
     Route: 048
  26. VALIUM [Concomitant]
     Dosage: 5 MG, PRN
  27. OXYCODONE HCL [Concomitant]
     Dosage: 5 MG, PRN
     Route: 048
  28. LOMOTIL [Concomitant]
     Dosage: UNK
     Route: 048
  29. VIAGRA [Concomitant]
     Dosage: UNK
     Route: 048

REACTIONS (31)
  - ANXIETY [None]
  - ASTHENIA [None]
  - BONE DISORDER [None]
  - BONE OPERATION [None]
  - CERVICOBRACHIAL SYNDROME [None]
  - CHEST PAIN [None]
  - DECREASED INTEREST [None]
  - DEPRESSION [None]
  - DYSURIA [None]
  - ERECTILE DYSFUNCTION [None]
  - FATIGUE [None]
  - GYNAECOMASTIA [None]
  - HOT FLUSH [None]
  - HYPOAESTHESIA [None]
  - IMPAIRED HEALING [None]
  - INFECTION [None]
  - INJURY [None]
  - INSOMNIA [None]
  - JAW OPERATION [None]
  - NAUSEA [None]
  - NUTRITIONAL CONDITION ABNORMAL [None]
  - ORAL CAVITY FISTULA [None]
  - OSTEONECROSIS [None]
  - OSTEOSARCOMA METASTATIC [None]
  - PAIN [None]
  - PAIN IN JAW [None]
  - PARAESTHESIA [None]
  - RIB FRACTURE [None]
  - TOOTH EXTRACTION [None]
  - URINARY TRACT INFECTION [None]
  - VOMITING [None]
